FAERS Safety Report 6597187-1 (Version None)
Quarter: 2010Q1

REPORT INFORMATION
  Report Type: 
  Country: None (occurrence: None)
  Receive Date: 20100223
  Receipt Date: 20100211
  Transmission Date: 20100710
  Serious: Yes (Other)
  Sender: FDA-Public Use
  Company Number: US-PFIZER INC-2010021618

PATIENT
  Sex: Male
  Weight: 84.354 kg

DRUGS (10)
  1. XANAX [Suspect]
     Indication: ANXIETY
     Dosage: FREQUENCY: 2X/DAY,
     Dates: start: 19900101
  2. COREG [Concomitant]
  3. PREVACID [Concomitant]
     Dosage: 30 MG, UNK
  4. BENICAR [Concomitant]
     Indication: HYPERTENSION
     Dosage: 20 MG, UNK
  5. SPIRONOLACTONE W/ HYDROCHLOROTHIAZIDE [Concomitant]
     Dosage: 25/25 MG DAILY
  6. CARVEDILOL [Concomitant]
     Indication: HYPERTENSION
     Dosage: 6.25 MG, UNK
  7. ACETYLSALICYLIC ACID [Concomitant]
     Dosage: 81 MG, UNK
  8. GLUCOSAMINE [Concomitant]
     Dosage: 1500 MG, UNK
  9. LOVAZA [Concomitant]
     Dosage: FREQUENCY: 2X/DAY,
  10. FISH OIL [Concomitant]
     Dosage: UNK

REACTIONS (8)
  - BLOOD GLUCOSE INCREASED [None]
  - BLOOD PRESSURE INCREASED [None]
  - DIZZINESS [None]
  - GAIT DISTURBANCE [None]
  - HEADACHE [None]
  - INSOMNIA [None]
  - MUSCULOSKELETAL PAIN [None]
  - STRESS [None]
